FAERS Safety Report 8831780 (Version 1)
Quarter: 2012Q4

REPORT INFORMATION
  Report Type: Report from Study
  Country: US (occurrence: US)
  Receive Date: 20121009
  Receipt Date: 20121009
  Transmission Date: 20130627
  Serious: Yes (Other)
  Sender: FDA-Public Use
  Company Number: US-ROCHE-1139541

PATIENT
  Age: 57 Year
  Sex: Female
  Weight: 65.83 kg

DRUGS (5)
  1. OMALIZUMAB [Suspect]
     Indication: ASTHMA
     Route: 058
     Dates: start: 20120830, end: 20120831
  2. SYMBICORT [Concomitant]
  3. PULMICORT [Concomitant]
  4. ZYRTEC-D [Concomitant]
  5. NASONEX [Concomitant]

REACTIONS (5)
  - Influenza like illness [Recovered/Resolved]
  - Fatigue [Recovered/Resolved]
  - Paranasal sinus hypersecretion [Recovered/Resolved]
  - Sinus congestion [Recovered/Resolved]
  - Asthma [Recovered/Resolved]
